FAERS Safety Report 23063092 (Version 1)
Quarter: 2023Q4

REPORT INFORMATION
  Report Type: Spontaneous
  Country: US (occurrence: None)
  Receive Date: 20231012
  Receipt Date: 20231012
  Transmission Date: 20240110
  Serious: No
  Sender: FDA-Public Use
  Company Number: None

PATIENT
  Age: 74 Year
  Sex: Male
  Weight: 127.46 kg

DRUGS (4)
  1. APREMILAST [Suspect]
     Active Substance: APREMILAST
     Indication: Psoriatic arthropathy
     Dosage: FREQUENCY : TWICE A DAY;?
     Route: 048
     Dates: start: 202211
  2. APREMILAST [Suspect]
     Active Substance: APREMILAST
     Indication: Psoriasis
  3. APREMILAST [Suspect]
     Active Substance: APREMILAST
     Indication: Spinal osteoarthritis
  4. APREMILAST [Suspect]
     Active Substance: APREMILAST
     Indication: Osteoarthritis

REACTIONS (3)
  - Pneumonia [None]
  - Atrial fibrillation [None]
  - Intentional dose omission [None]
